FAERS Safety Report 25852719 (Version 1)
Quarter: 2025Q3

REPORT INFORMATION
  Report Type: Report from Study
  Country: US (occurrence: US)
  Receive Date: 20250926
  Receipt Date: 20250926
  Transmission Date: 20251021
  Serious: Yes (Hospitalization, Other)
  Sender: GILEAD
  Company Number: US-GILEAD-2025-0729970

PATIENT
  Age: 46 Year
  Sex: Female

DRUGS (13)
  1. AZTREONAM LYSINE [Suspect]
     Active Substance: AZTREONAM LYSINE
     Indication: Bronchiectasis
     Dosage: INHALE 75MG VIA NEBULIZER THREE TIMES DAILY 28 DAYS ON AND 28 DAYS OFF. TO ALTERNATE WITH COLISTIN
     Route: 055
     Dates: start: 20170615
  2. COLISTIN [Concomitant]
     Active Substance: COLISTIN
  3. ASPIRIN [Concomitant]
     Active Substance: ASPIRIN
  4. AZITHROMYCIN [Concomitant]
     Active Substance: AZITHROMYCIN
  5. AZTREONAM [Concomitant]
     Active Substance: AZTREONAM
  6. CALCIUM D3 [CALCIUM CARBONATE;COLECALCIFEROL] [Concomitant]
  7. PROBIOTICS NOS [Concomitant]
     Active Substance: PROBIOTICS NOS
  8. FUROSEMIDE [Concomitant]
     Active Substance: FUROSEMIDE
  9. GUAIFENESIN [Concomitant]
     Active Substance: GUAIFENESIN
  10. HYDROXYCHLOROQUINE [Concomitant]
     Active Substance: HYDROXYCHLOROQUINE
  11. PREDNISONE [Concomitant]
     Active Substance: PREDNISONE
  12. SODIUM CHLORIDE [Concomitant]
     Active Substance: SODIUM CHLORIDE
  13. VITAMIN D NOS [Concomitant]
     Active Substance: CHOLECALCIFEROL\ERGOCALCIFEROL

REACTIONS (2)
  - Pneumonia [Unknown]
  - Product use in unapproved indication [Not Recovered/Not Resolved]
